FAERS Safety Report 13398443 (Version 1)
Quarter: 2017Q2

REPORT INFORMATION
  Report Type: Report from Study
  Country: NL (occurrence: NL)
  Receive Date: 20170403
  Receipt Date: 20170403
  Transmission Date: 20170830
  Serious: Yes (Death)
  Sender: FDA-Public Use
  Company Number: NL-ACTELION-A-NJ2017-151978

PATIENT
  Age: 60 Year
  Sex: Female

DRUGS (1)
  1. VENTAVIS [Suspect]
     Active Substance: ILOPROST
     Indication: PULMONARY ARTERIAL HYPERTENSION
     Dosage: 5 MCG, 6 X/DAY
     Route: 055
     Dates: start: 20141003, end: 20161216

REACTIONS (1)
  - Death [Fatal]

NARRATIVE: CASE EVENT DATE: 20170316
